FAERS Safety Report 7001183-X (Version None)
Quarter: 2010Q3

REPORT INFORMATION
  Report Type: 
  Country: None (occurrence: None)
  Receive Date: 20100920
  Receipt Date: 20070515
  Transmission Date: 20110219
  Serious: Yes (Other)
  Sender: FDA-Public Use
  Company Number: US-ASTRAZENECA-2007UW04080

PATIENT
  Age: 21433 Day
  Sex: Female
  Weight: 80.1 kg

DRUGS (24)
  1. SEROQUEL [Suspect]
     Indication: MENTAL DISORDER
     Route: 048
     Dates: start: 20050331, end: 20050409
  2. SEROQUEL [Suspect]
     Indication: SLEEP DISORDER
     Route: 048
     Dates: start: 20050331, end: 20050409
  3. ABILIFY [Concomitant]
  4. GEODON [Concomitant]
  5. HALDOL [Concomitant]
     Route: 048
     Dates: start: 19970430
  6. RISPERDAL [Concomitant]
     Dosage: 1 MG - 2 MG
     Route: 048
     Dates: start: 20050409
  7. ZYPREXA [Concomitant]
     Route: 048
     Dates: start: 20030603
  8. COGENTIN [Concomitant]
     Route: 048
     Dates: start: 19970430
  9. ZOLOFT [Concomitant]
     Route: 048
     Dates: start: 20050409
  10. ZESTRIL [Concomitant]
     Route: 048
     Dates: start: 20050409
  11. TARKA [Concomitant]
     Dosage: 2/180 MG
     Route: 048
     Dates: start: 20050331
  12. DIOVAN [Concomitant]
     Route: 048
     Dates: start: 20030603
  13. CATAPRES [Concomitant]
     Route: 048
     Dates: start: 20050331
  14. GLUCOPHAGE [Concomitant]
     Route: 048
     Dates: start: 20050331
  15. VISTARIL [Concomitant]
     Dosage: 25 MG - 50 MG
     Route: 048
     Dates: start: 20050331, end: 20050409
  16. RESTORIL [Concomitant]
     Indication: SLEEP DISORDER
     Dosage: 15 MG - 30 MG
     Route: 048
     Dates: start: 20030603
  17. BUSPAR [Concomitant]
     Route: 048
     Dates: start: 20050409
  18. EFFEXOR XR [Concomitant]
     Route: 048
     Dates: start: 20050331
  19. TRENTAL [Concomitant]
     Dosage: 60 MG - 400 MG
     Route: 048
     Dates: start: 19970430
  20. TENORMIN [Concomitant]
     Route: 048
     Dates: start: 19970430
  21. XANAX [Concomitant]
     Route: 048
     Dates: start: 19970430
  22. NORVASC [Concomitant]
     Route: 048
     Dates: start: 20030603
  23. AVANDIA [Concomitant]
     Route: 048
     Dates: start: 20030603
  24. ASPIRIN [Concomitant]
     Route: 048
     Dates: start: 20030603

REACTIONS (5)
  - ANXIETY [None]
  - DIABETES MELLITUS [None]
  - EXTRAPYRAMIDAL DISORDER [None]
  - PANCREATITIS [None]
  - TYPE 2 DIABETES MELLITUS [None]
